FAERS Safety Report 4403111-X (Version None)
Quarter: 2004Q3

REPORT INFORMATION
  Report Type: 
  Country: None (occurrence: None)
  Receive Date: 20040721
  Receipt Date: 20040304
  Transmission Date: 20050211
  Serious: Yes (Life-Threatening, Hospitalization, Other)
  Sender: FDA-Public Use
  Company Number: US-GLAXOSMITHKLINE-A0501200A

PATIENT
  Age: 62 Year
  Sex: Female
  Weight: 62.3 kg

DRUGS (5)
  1. IMITREX [Suspect]
     Indication: MIGRAINE
     Dosage: 50MG SINGLE DOSE
     Route: 048
  2. FIORICET [Concomitant]
     Indication: MIGRAINE
  3. SYNTHROID [Concomitant]
  4. GLUCOVANCE [Concomitant]
  5. ENALAPRIL MALEATE [Concomitant]

REACTIONS (8)
  - CHEST DISCOMFORT [None]
  - CHEST PAIN [None]
  - DYSPNOEA [None]
  - MEDICATION ERROR [None]
  - MYOCARDIAL INFARCTION [None]
  - NAUSEA [None]
  - PALLOR [None]
  - VOMITING [None]
